FAERS Safety Report 19782929 (Version 1)
Quarter: 2021Q3

REPORT INFORMATION
  Report Type: Spontaneous
  Country: CA (occurrence: CA)
  Receive Date: 20210902
  Receipt Date: 20210902
  Transmission Date: 20211014
  Serious: Yes (Hospitalization)
  Sender: FDA-Public Use
  Company Number: CA-ALLERGAN-2130860US

PATIENT
  Sex: Female

DRUGS (2)
  1. TESTOSTERONE UNK [Suspect]
     Active Substance: TESTOSTERONE
     Indication: TRANSGENDER HORMONAL THERAPY
     Route: 062
  2. TESTOSTERONE UNK [Suspect]
     Active Substance: TESTOSTERONE
     Indication: TRANSGENDER HORMONAL THERAPY
     Route: 065

REACTIONS (5)
  - Adnexal torsion [Unknown]
  - Ovarian cancer stage II [Unknown]
  - Ovarian endometrioid carcinoma [Unknown]
  - Off label use [Unknown]
  - Ovarian necrosis [Unknown]
